FAERS Safety Report 5284750-3 (Version None)
Quarter: 2007Q1

REPORT INFORMATION
  Report Type: 
  Country: None (occurrence: None)
  Receive Date: 20061229
  Receipt Date: 20060418
  Transmission Date: 20070707
  Serious: Yes (Hospitalization)
  Sender: FDA-Public Use
  Company Number: PHEH2006US03181

PATIENT
  Age: 21 Year
  Sex: Male
  Weight: 127.9 kg

DRUGS (4)
  1. CLOZARIL [Suspect]
     Indication: SCHIZOPHRENIA
     Dosage: 150 MG BID, ORAL
     Route: 048
     Dates: start: 20050429, end: 20060201
  2. GEODON [Suspect]
     Dosage: 80 MG, BID, ORAL
     Route: 048
     Dates: start: 20060201, end: 20060301
  3. ATIVAN [Concomitant]
  4. PREVACID [Concomitant]

REACTIONS (5)
  - DISEASE RECURRENCE [None]
  - MENTAL IMPAIRMENT [None]
  - NEUTROPHIL COUNT INCREASED [None]
  - SCHIZOPHRENIA [None]
  - WHITE BLOOD CELL COUNT INCREASED [None]
